FAERS Safety Report 9160185 (Version 1)
Quarter: 2013Q1

REPORT INFORMATION
  Report Type: Spontaneous
  Country: US (occurrence: US)
  Receive Date: 20130313
  Receipt Date: 20130313
  Transmission Date: 20140127
  Serious: Yes (Other)
  Sender: FDA-Public Use
  Company Number: US-PFIZER INC-2013081806

PATIENT
  Age: 38 Year
  Sex: Female
  Weight: 155 kg

DRUGS (8)
  1. LYRICA [Suspect]
     Indication: PAIN IN EXTREMITY
     Dosage: 100 MG, AS NEEDED
     Dates: end: 2008
  2. LYRICA [Suspect]
     Dosage: 100 MG, 3X/DAY
     Dates: start: 2008
  3. SAVELLA [Concomitant]
     Dosage: 200 MG, 2X/DAY
  4. NUCYNTA ER [Concomitant]
     Dosage: 200 MG, 2X/DAY
  5. ZOLOFT [Concomitant]
     Dosage: UNK
  6. IRON [Concomitant]
     Indication: BLOOD IRON DECREASED
     Dosage: UNK
  7. IRON [Concomitant]
     Indication: MALABSORPTION
  8. IRON [Concomitant]
     Indication: BLOOD IRON DECREASED

REACTIONS (7)
  - Bedridden [Unknown]
  - Haemoglobin abnormal [Unknown]
  - Blood iron abnormal [Unknown]
  - Rotator cuff syndrome [Not Recovered/Not Resolved]
  - Weight increased [Not Recovered/Not Resolved]
  - Nausea [Unknown]
  - Vomiting [Unknown]
